FAERS Safety Report 16904634 (Version 1)
Quarter: 2019Q4

REPORT INFORMATION
  Report Type: Spontaneous
  Country: US (occurrence: US)
  Receive Date: 20191010
  Receipt Date: 20191010
  Transmission Date: 20200122
  Serious: Yes (Hospitalization)
  Sender: FDA-Public Use
  Company Number: US-PFIZER INC-2019437661

PATIENT
  Age: 60 Year
  Sex: Female

DRUGS (1)
  1. IBRANCE [Suspect]
     Active Substance: PALBOCICLIB
     Indication: BREAST CANCER FEMALE
     Dosage: 125 MG, CYCLIC(DAILY FOR 21 DAYS FOLLOWED BY 7 DAYS OFF FOR A 28 DAY CYCLE)
     Route: 048
     Dates: start: 201905

REACTIONS (2)
  - Muscle spasms [Unknown]
  - Syncope [Unknown]

NARRATIVE: CASE EVENT DATE: 2019
